FAERS Safety Report 24875528 (Version 3)
Quarter: 2025Q1

REPORT INFORMATION
  Report Type: Report from Study
  Country: JP (occurrence: JP)
  Receive Date: 20250122
  Receipt Date: 20250310
  Transmission Date: 20250408
  Serious: Yes (Other)
  Sender: EISAI
  Company Number: JP-Eisai-202413492_LEQ_P_1

PATIENT
  Age: 76 Year
  Sex: Female
  Weight: 53 kg

DRUGS (3)
  1. LEQEMBI [Suspect]
     Active Substance: LECANEMAB-IRMB
     Indication: Cognitive disorder
     Route: 042
     Dates: start: 20240417
  2. NIFEDIPINE [Concomitant]
     Active Substance: NIFEDIPINE
     Indication: Hypertension
     Route: 048
  3. CANDESARTAN [Concomitant]
     Active Substance: CANDESARTAN
     Indication: Hypertension
     Route: 048

REACTIONS (2)
  - Infusion related reaction [Recovered/Resolved]
  - Epilepsy [Recovered/Resolved]

NARRATIVE: CASE EVENT DATE: 20240417
